FAERS Safety Report 24462408 (Version 5)
Quarter: 2025Q1

REPORT INFORMATION
  Report Type: Report from Study
  Country: NL (occurrence: NL)
  Receive Date: 20241018
  Receipt Date: 20250305
  Transmission Date: 20250409
  Serious: Yes (Other)
  Sender: SERVIER
  Company Number: NL-SERVIER-S24012950

PATIENT

DRUGS (3)
  1. VORASIDENIB [Suspect]
     Active Substance: VORASIDENIB
     Indication: Astrocytoma
     Dosage: 40 MG, QD
     Route: 048
     Dates: start: 20240601, end: 20240906
  2. VORASIDENIB [Suspect]
     Active Substance: VORASIDENIB
     Dosage: 20 MG, QD
     Route: 048
     Dates: start: 20241026
  3. VORASIDENIB [Suspect]
     Active Substance: VORASIDENIB
     Dosage: 10 MG, QD
     Route: 048
     Dates: start: 20241221

REACTIONS (5)
  - Aspartate aminotransferase increased [Recovered/Resolved]
  - Alanine aminotransferase increased [Recovered/Resolved]
  - Aspartate aminotransferase increased [Recovering/Resolving]
  - Alanine aminotransferase increased [Recovering/Resolving]
  - Gamma-glutamyltransferase increased [Recovering/Resolving]

NARRATIVE: CASE EVENT DATE: 20240906
